FAERS Safety Report 6944620-9 (Version None)
Quarter: 2010Q3

REPORT INFORMATION
  Report Type: 
  Country: None (occurrence: None)
  Receive Date: 20100823
  Receipt Date: 20100809
  Transmission Date: 20110219
  Serious: Yes (Congenital Anomaly)
  Sender: FDA-Public Use
  Company Number: 2010P1000785

PATIENT
  Age: 2 Day
  Sex: Male
  Weight: 3.2 kg

DRUGS (5)
  1. PREDNISONE [Suspect]
  2. FLUTICASONE/SALMETEROL (NO PREF. NAME) [Suspect]
  3. BECLOMNETHASONE (NO PREF. NAME) [Suspect]
  4. OMEPRAZOLE [Suspect]
  5. HYDROXYZINE [Suspect]

REACTIONS (7)
  - ADRENAL INSUFFICIENCY NEONATAL [None]
  - CONVULSION NEONATAL [None]
  - ERYSIPELAS [None]
  - HAEMANGIOMA CONGENITAL [None]
  - HYPOGLYCAEMIC SEIZURE [None]
  - HYPOSPADIAS [None]
  - MATERNAL DRUGS AFFECTING FOETUS [None]
